FAERS Safety Report 5601435-1 (Version None)
Quarter: 2008Q1

REPORT INFORMATION
  Report Type: 
  Country: None (occurrence: None)
  Receive Date: 20080124
  Receipt Date: 20080116
  Transmission Date: 20080703
  Serious: Yes (Hospitalization)
  Sender: FDA-Public Use
  Company Number: PHBS2008AT00852

PATIENT
  Sex: Female

DRUGS (1)
  1. LESCOL [Suspect]
     Route: 065
     Dates: end: 20071101

REACTIONS (1)
  - DERMATOMYOSITIS [None]
